FAERS Safety Report 14237601 (Version 2)
Quarter: 2018Q1

REPORT INFORMATION
  Report Type: Spontaneous
  Country: SE (occurrence: SE)
  Receive Date: 20171129
  Receipt Date: 20180111
  Transmission Date: 20180508
  Serious: Yes (Hospitalization, Other)
  Sender: FDA-Public Use
  Company Number: SE-VISTAPHARM, INC.-VER201711-001123

PATIENT
  Age: 42 Year
  Sex: Female

DRUGS (13)
  1. FLUNITRAZEPAM [Concomitant]
     Active Substance: FLUNITRAZEPAM
  2. FUROSEMIDE. [Concomitant]
     Active Substance: FUROSEMIDE
  3. PARACETAMOL [Concomitant]
     Active Substance: ACETAMINOPHEN
     Dosage: 500 MG WHEN NEEDED TO A MAXIMUM OF EIGHT TABLETS/DAY
  4. OMEPRAZOLE. [Concomitant]
     Active Substance: OMEPRAZOLE
  5. CYCLIZINE [Concomitant]
     Active Substance: CYCLIZINE
  6. METHADONE [Suspect]
     Active Substance: METHADONE HYDROCHLORIDE
     Indication: GASTROINTESTINAL PAIN
     Route: 048
  7. METRONIDAZOLE. [Concomitant]
     Active Substance: METRONIDAZOLE
  8. CIPROFLOXACIN. [Suspect]
     Active Substance: CIPROFLOXACIN
     Indication: UROSEPSIS
  9. CIPROFLOXACIN. [Suspect]
     Active Substance: CIPROFLOXACIN
     Indication: URINARY TRACT INFECTION
     Dosage: THREE TIMES IN THREE DIFFERENT DEPARTMENTS
  10. VENLAFAXINE [Concomitant]
     Active Substance: VENLAFAXINE HYDROCHLORIDE
  11. NITRAZEPAM [Concomitant]
     Active Substance: NITRAZEPAM
     Dosage: 5 MG WHEN NEEDED TO A MAXIMUM OF FOUR TABLETS/DAY
  12. PROPANTHELINE BROMIDE. [Concomitant]
     Active Substance: PROPANTHELINE BROMIDE
  13. COTRIMOXAZOLE [Concomitant]
     Active Substance: SULFAMETHOXAZOLE\TRIMETHOPRIM
     Indication: UROSEPSIS

REACTIONS (4)
  - Respiratory depression [Unknown]
  - Confusional state [Recovered/Resolved]
  - Drug interaction [Unknown]
  - Sedation [Unknown]
